FAERS Safety Report 17318442 (Version 3)
Quarter: 2020Q1

REPORT INFORMATION
  Report Type: Report from Study
  Country: US (occurrence: US)
  Receive Date: 20200124
  Receipt Date: 20200228
  Transmission Date: 20200409
  Serious: Yes (Death, Hospitalization)
  Sender: FDA-Public Use
  Company Number: NVSC2020US016905

PATIENT
  Age: 63 Year
  Sex: Female

DRUGS (1)
  1. PIQRAY [Suspect]
     Active Substance: ALPELISIB
     Indication: PRODUCT USED FOR UNKNOWN INDICATION
     Dosage: UNK
     Route: 048

REACTIONS (4)
  - Sepsis [Unknown]
  - Liver disorder [Unknown]
  - Death [Fatal]
  - Blood glucose increased [Unknown]

NARRATIVE: CASE EVENT DATE: 20200214
